FAERS Safety Report 24650029 (Version 1)
Quarter: 2024Q4

REPORT INFORMATION
  Report Type: Spontaneous
  Country: CN (occurrence: CN)
  Receive Date: 20241122
  Receipt Date: 20241122
  Transmission Date: 20250115
  Serious: Yes (Other)
  Sender: NOVO NORDISK
  Company Number: None

PATIENT
  Age: 69 Year
  Sex: Male

DRUGS (1)
  1. INSULIN ASPART [Suspect]
     Active Substance: INSULIN ASPART
     Indication: Type 2 diabetes mellitus
     Dosage: 15 IU, BID(IN THE MORNING AND EVENING)
     Route: 058
     Dates: start: 20241103, end: 20241110

REACTIONS (2)
  - Skin induration [Unknown]
  - Pruritus [Unknown]

NARRATIVE: CASE EVENT DATE: 20241110
